FAERS Safety Report 14115950 (Version 2)
Quarter: 2018Q3

REPORT INFORMATION
  Report Type: Spontaneous
  Country: US (occurrence: US)
  Receive Date: 20171023
  Receipt Date: 20180924
  Transmission Date: 20181010
  Serious: No
  Sender: FDA-Public Use
  Company Number: US-ALLERGAN-1748557US

PATIENT
  Age: 67 Year
  Sex: Female

DRUGS (3)
  1. LINZESS [Suspect]
     Active Substance: LINACLOTIDE
     Dosage: 145 ?G, QD, 30 MINUTES BEFORE BREAKFAST
     Route: 048
     Dates: start: 201706, end: 201707
  2. METOPROLOL. [Concomitant]
     Active Substance: METOPROLOL
     Indication: HEART RATE IRREGULAR
     Dosage: 0.25 MG, QD
     Route: 048
  3. LINZESS [Suspect]
     Active Substance: LINACLOTIDE
     Indication: IRRITABLE BOWEL SYNDROME
     Dosage: 145 ?G, QOD
     Route: 048
     Dates: start: 201706, end: 201707

REACTIONS (6)
  - Off label use [Unknown]
  - Intentional dose omission [Unknown]
  - Rectal tenesmus [Recovered/Resolved]
  - Adnexa uteri pain [Recovered/Resolved]
  - Diarrhoea [Recovered/Resolved]
  - Pelvic pain [Recovered/Resolved]
